FAERS Safety Report 7093817-9 (Version None)
Quarter: 2010Q4

REPORT INFORMATION
  Report Type: 
  Country: None (occurrence: None)
  Receive Date: 20101110
  Receipt Date: 20101104
  Transmission Date: 20110411
  Serious: Yes (Other)
  Sender: FDA-Public Use
  Company Number: A0772394A

PATIENT
  Age: 60 Year
  Sex: Female
  Weight: 56.8 kg

DRUGS (7)
  1. AVANDIA [Suspect]
     Dosage: 4MG PER DAY
     Route: 048
     Dates: start: 20040101, end: 20070101
  2. AMITRIPTYLINE HCL [Concomitant]
  3. CATAPRES [Concomitant]
  4. OXYCODONE HCL [Concomitant]
  5. ZOVIRAX [Concomitant]
  6. LIPITOR [Concomitant]
  7. FOSAMAX [Concomitant]

REACTIONS (3)
  - CAROTID ARTERY OCCLUSION [None]
  - CEREBROVASCULAR ACCIDENT [None]
  - STRESS FRACTURE [None]
